FAERS Safety Report 19634241 (Version 9)
Quarter: 2021Q4

REPORT INFORMATION
  Report Type: Report from Study
  Country: US (occurrence: US)
  Receive Date: 20210730
  Receipt Date: 20211014
  Transmission Date: 20220303
  Serious: No
  Sender: FDA-Public Use
  Company Number: NVSC2021US149764

PATIENT
  Sex: Female
  Weight: 83.9 kg

DRUGS (5)
  1. TREPROSTINIL [Suspect]
     Active Substance: TREPROSTINIL
     Indication: Hypertension
     Dosage: (6.25 NG/KG/MIN)
     Route: 058
     Dates: start: 20210609
  2. TREPROSTINIL [Suspect]
     Active Substance: TREPROSTINIL
     Dosage: 11.25 NG/KG/M/N CONT
     Route: 058
     Dates: start: 20210821
  3. SILDENAFIL CITRATE [Concomitant]
     Active Substance: SILDENAFIL CITRATE
     Indication: Product used for unknown indication
     Dosage: UNK
     Route: 065
  4. AMLODIPINE [Concomitant]
     Active Substance: AMLODIPINE BESYLATE
     Indication: Product used for unknown indication
     Dosage: UNK
     Route: 065
  5. LETAIRIS [Concomitant]
     Active Substance: AMBRISENTAN
     Indication: Product used for unknown indication
     Dosage: UNK
     Route: 065

REACTIONS (13)
  - Pain in jaw [Unknown]
  - Presyncope [Unknown]
  - Respiratory rate decreased [Unknown]
  - Diarrhoea [Unknown]
  - Vomiting [Unknown]
  - Sinusitis [Unknown]
  - Nausea [Unknown]
  - Hypotension [Unknown]
  - Headache [Unknown]
  - Injection site pain [Unknown]
  - Injection site erythema [Unknown]
  - Injection site swelling [Unknown]
  - Injection site discomfort [Unknown]
